FAERS Safety Report 9542484 (Version 2)
Quarter: 2013Q4

REPORT INFORMATION
  Report Type: Spontaneous
  Country: US (occurrence: US)
  Receive Date: 20130923
  Receipt Date: 20131004
  Transmission Date: 20140711
  Serious: No
  Sender: FDA-Public Use
  Company Number: US-ROXANE LABORATORIES, INC.-2013-RO-01554RO

PATIENT
  Age: 60 Year
  Sex: Female
  Weight: 71 kg

DRUGS (4)
  1. CLOTRIMAZOLE [Suspect]
     Indication: ORAL CANDIDIASIS
     Dosage: 40 MG
     Route: 048
     Dates: start: 20130903, end: 20130911
  2. MULTIVITAMIN [Concomitant]
  3. PERCOCET [Concomitant]
     Indication: COMPLEX REGIONAL PAIN SYNDROME
  4. CO Q10 [Concomitant]
     Dosage: 120 MG

REACTIONS (4)
  - Tongue dry [Not Recovered/Not Resolved]
  - Dry mouth [Not Recovered/Not Resolved]
  - Lip dry [Not Recovered/Not Resolved]
  - Nasal dryness [Not Recovered/Not Resolved]
